FAERS Safety Report 10961570 (Version 1)
Quarter: 2015Q1

REPORT INFORMATION
  Report Type: Spontaneous
  Country: US (occurrence: None)
  Receive Date: 20150326
  Receipt Date: 20150326
  Transmission Date: 20150721
  Serious: No
  Sender: FDA-Public Use
  Company Number: None

PATIENT
  Age: 62 Year
  Sex: Male
  Weight: 120.2 kg

DRUGS (2)
  1. CPAP [Concomitant]
     Active Substance: DEVICE
  2. CELECOXIB 200MG TEVA [Suspect]
     Active Substance: CELECOXIB
     Indication: PAIN
     Route: 048

REACTIONS (2)
  - Product substitution issue [None]
  - Pain [None]

NARRATIVE: CASE EVENT DATE: 20150105
